FAERS Safety Report 21509905 (Version 1)
Quarter: 2022Q4

REPORT INFORMATION
  Report Type: Spontaneous
  Country: JP (occurrence: JP)
  Receive Date: 20221026
  Receipt Date: 20221026
  Transmission Date: 20230113
  Serious: Yes (Death, Other)
  Sender: FDA-Public Use
  Company Number: JP-JAZZ-2022-JP-028503

PATIENT
  Age: 34 Year
  Sex: Female
  Weight: 60.5 kg

DRUGS (1)
  1. DEFITELIO [Suspect]
     Active Substance: DEFIBROTIDE SODIUM
     Indication: Venoocclusive liver disease
     Dosage: 25 MILLIGRAM/KILOGRAM
     Route: 042
     Dates: start: 20220223, end: 20220307

REACTIONS (1)
  - Pneumonia [Fatal]

NARRATIVE: CASE EVENT DATE: 20220307
